FAERS Safety Report 25681706 (Version 2)
Quarter: 2025Q3

REPORT INFORMATION
  Report Type: Spontaneous
  Country: RU (occurrence: RU)
  Receive Date: 20250814
  Receipt Date: 20250820
  Transmission Date: 20251021
  Serious: Yes (Death, Other)
  Sender: NOVARTIS
  Company Number: RU-002147023-NVSC2024RU077023

PATIENT
  Age: 35 Year
  Sex: Female

DRUGS (2)
  1. DABRAFENIB [Suspect]
     Active Substance: DABRAFENIB
     Indication: Nodular melanoma
     Route: 065
  2. TRAMETINIB [Suspect]
     Active Substance: TRAMETINIB
     Indication: Nodular melanoma
     Route: 065

REACTIONS (2)
  - Malignant neoplasm progression [Fatal]
  - Nodular melanoma [Fatal]

NARRATIVE: CASE EVENT DATE: 20211217
